FAERS Safety Report 15423673 (Version 1)
Quarter: 2018Q3

REPORT INFORMATION
  Report Type: Spontaneous
  Country: US (occurrence: US)
  Receive Date: 20180925
  Receipt Date: 20180925
  Transmission Date: 20181010
  Serious: No
  Sender: FDA-Public Use
  Company Number: US-DRREDDYS-USA/USA/18/0101386

PATIENT
  Age: 55 Year
  Sex: Female

DRUGS (1)
  1. AUGMENTIN [Suspect]
     Active Substance: AMOXICILLIN\CLAVULANATE POTASSIUM
     Indication: ABSCESS
     Route: 065

REACTIONS (9)
  - Blister [Unknown]
  - Vomiting [Unknown]
  - Diarrhoea [Unknown]
  - Weight decreased [Unknown]
  - Dysphagia [Unknown]
  - Drug hypersensitivity [Unknown]
  - Product quality issue [Unknown]
  - Fear [Unknown]
  - Alopecia [Unknown]

NARRATIVE: CASE EVENT DATE: 2016
